FAERS Safety Report 5983110-7 (Version None)
Quarter: 2008Q4

REPORT INFORMATION
  Report Type: 
  Country: None (occurrence: None)
  Receive Date: 20081208
  Receipt Date: 20081124
  Transmission Date: 20090506
  Serious: Yes (Other)
  Sender: FDA-Public Use
  Company Number: DE-TEVA-181664ISR

PATIENT
  Age: 48 Year
  Sex: Female

DRUGS (2)
  1. CARBAMAZEPINE [Suspect]
  2. PREGABALIN [Suspect]

REACTIONS (1)
  - CYTOTOXIC OEDEMA [None]
